FAERS Safety Report 5054299-1 (Version None)
Quarter: 2006Q3

REPORT INFORMATION
  Report Type: 
  Country: None (occurrence: None)
  Receive Date: 20060713
  Receipt Date: 20060630
  Transmission Date: 20061208
  Serious: Yes (Death, Hospitalization)
  Sender: FDA-Public Use
  Company Number: 2006MP000843

PATIENT
  Age: 48 Year
  Sex: Male

DRUGS (2)
  1. GLIADEL [Suspect]
     Indication: GLIOBLASTOMA MULTIFORME
     Dosage: X1
     Dates: start: 20060502, end: 20060514
  2. GLIASITE [Concomitant]

REACTIONS (5)
  - BRAIN OEDEMA [None]
  - CEREBRAL HAEMATOMA [None]
  - DEEP VEIN THROMBOSIS [None]
  - POST PROCEDURAL COMPLICATION [None]
  - PULMONARY EMBOLISM [None]
